FAERS Safety Report 12126508 (Version 1)
Quarter: 2016Q1

REPORT INFORMATION
  Report Type: Report from Study
  Country: US (occurrence: US)
  Receive Date: 20160229
  Receipt Date: 20160229
  Transmission Date: 20160526
  Serious: Yes (Hospitalization)
  Sender: FDA-Public Use
  Company Number: US-GILEAD-2016-0200791

PATIENT
  Age: 63 Year
  Sex: Female

DRUGS (9)
  1. PREDNISONE. [Concomitant]
     Active Substance: PREDNISONE
     Dates: start: 20140114
  2. ALLOPURINOL. [Concomitant]
     Active Substance: ALLOPURINOL
     Dates: start: 20140114
  3. FUROSEMIDE. [Concomitant]
     Active Substance: FUROSEMIDE
     Dates: start: 20150119
  4. TRAMADOL. [Concomitant]
     Active Substance: TRAMADOL
     Dates: start: 20140114
  5. CITALOPRAM [Concomitant]
     Active Substance: CITALOPRAM HYDROBROMIDE
     Dates: start: 20140114
  6. FLUTICASONE [Concomitant]
     Active Substance: FLUTICASONE\FLUTICASONE PROPIONATE
     Dates: start: 20140114
  7. AMBRISENTAN [Suspect]
     Active Substance: AMBRISENTAN
     Indication: PULMONARY HYPERTENSION
     Dosage: 10 MG, QD
     Route: 065
     Dates: start: 20140131
  8. ATENOLOL. [Concomitant]
     Active Substance: ATENOLOL
     Dates: start: 20140114
  9. ISOSORB MONO [Concomitant]
     Active Substance: ISOSORBIDE MONONITRATE
     Dates: start: 20140114

REACTIONS (2)
  - Unevaluable event [Unknown]
  - Large intestine polyp [Unknown]

NARRATIVE: CASE EVENT DATE: 201512
